FAERS Safety Report 6306930-8 (Version None)
Quarter: 2009Q3

REPORT INFORMATION
  Report Type: 
  Country: None (occurrence: None)
  Receive Date: 20090811
  Receipt Date: 20090811
  Transmission Date: 20100115
  Serious: Yes (Other)
  Sender: FDA-Public Use
  Company Number: None

PATIENT
  Age: 52 Year
  Sex: Female
  Weight: 104.3273 kg

DRUGS (1)
  1. PRIALT [Suspect]
     Indication: POST LAMINECTOMY SYNDROME
     Dosage: IT
     Route: 037
     Dates: start: 20090803, end: 20090810

REACTIONS (13)
  - ACTIVITIES OF DAILY LIVING IMPAIRED [None]
  - BLOOD PRESSURE INCREASED [None]
  - CONFUSIONAL STATE [None]
  - DIZZINESS [None]
  - DYSGRAPHIA [None]
  - HEADACHE [None]
  - LETHARGY [None]
  - NAUSEA [None]
  - PAIN [None]
  - READING DISORDER [None]
  - TREMOR [None]
  - VISION BLURRED [None]
  - VOMITING [None]
